FAERS Safety Report 14799778 (Version 1)
Quarter: 2018Q2

REPORT INFORMATION
  Report Type: Spontaneous
  Country: TR (occurrence: TR)
  Receive Date: 20180424
  Receipt Date: 20180424
  Transmission Date: 20180711
  Serious: Yes (Life-Threatening)
  Sender: FDA-Public Use
  Company Number: TR-TEVA-2018-TR-885194

PATIENT
  Age: 66 Year
  Sex: Male
  Weight: 91 kg

DRUGS (3)
  1. ALTUZAN [Concomitant]
     Active Substance: BEVACIZUMAB
     Indication: COLON CANCER
     Dosage: 675 MILLIGRAM DAILY; UNKNOWN FORM STRENGTH
     Route: 042
  2. XELODA [Concomitant]
     Active Substance: CAPECITABINE
     Indication: COLON CANCER
     Dosage: 3000 MILLIGRAM DAILY; UNKNOWN FORM STRENGTH
     Route: 048
  3. CURATINOX [Suspect]
     Active Substance: OXALIPLATIN
     Indication: COLON CANCER
     Dosage: 250 MILLIGRAM DAILY; UNKNOWN FORM STRENGTH
     Route: 042
     Dates: start: 20180328, end: 20180328

REACTIONS (9)
  - Oxygen saturation decreased [Recovering/Resolving]
  - Pyrexia [Recovering/Resolving]
  - Chills [Recovering/Resolving]
  - Neck pain [Recovering/Resolving]
  - Tremor [Recovering/Resolving]
  - Dyspnoea [Recovering/Resolving]
  - Erythema [Recovering/Resolving]
  - Hyperhidrosis [Recovering/Resolving]
  - Bladder discomfort [Recovering/Resolving]

NARRATIVE: CASE EVENT DATE: 20180328
